FAERS Safety Report 9631689 (Version 1)
Quarter: 2013Q3

REPORT INFORMATION
  Report Type: Spontaneous
  Country: ES (occurrence: None)
  Receive Date: 20130927
  Receipt Date: 20130927
  Transmission Date: 20140515
  Serious: Yes (Other)
  Sender: FDA-Public Use
  Company Number: ES-IGSA-IG1496

PATIENT
  Age: 34 Year
  Sex: Male

DRUGS (2)
  1. FLEBOGAMMA [Suspect]
     Indication: IMMUNODEFICIENCY COMMON VARIABLE
     Route: 042
     Dates: start: 20130906, end: 20130906
  2. OCTAGAMOCTA [Suspect]
     Indication: IMMUNODEFICIENCY COMMON VARIABLE
     Route: 042
     Dates: start: 20130906, end: 20130906

REACTIONS (2)
  - Serum sickness [None]
  - Polyarthritis [None]
